FAERS Safety Report 7486673-8 (Version None)
Quarter: 2011Q2

REPORT INFORMATION
  Report Type: 
  Country: None (occurrence: None)
  Receive Date: 20110517
  Receipt Date: 20100813
  Transmission Date: 20111010
  Serious: No
  Sender: FDA-Public Use
  Company Number: US-NOVEN-ALL1-2010-04300

PATIENT

DRUGS (3)
  1. DAYTRANA [Suspect]
     Dosage: 30 MG, 1X/DAY:QD
     Route: 062
  2. CLONIDINE [Concomitant]
     Dosage: .2 MG, 1X/DAY:QD AT BEDTIME
     Route: 048
  3. FLUOXETINE [Concomitant]
     Dosage: 10 MG, UNKNOWN
     Route: 048

REACTIONS (4)
  - DRUG INEFFECTIVE [None]
  - PSYCHOMOTOR HYPERACTIVITY [None]
  - PRODUCT QUALITY ISSUE [None]
  - INCORRECT STORAGE OF DRUG [None]
